FAERS Safety Report 7042812-4 (Version None)
Quarter: 2010Q4

REPORT INFORMATION
  Report Type: 
  Country: None (occurrence: None)
  Receive Date: 20101013
  Receipt Date: 20100430
  Transmission Date: 20110411
  Serious: No
  Sender: FDA-Public Use
  Company Number: US-ASTRAZENECA-2010SE19725

PATIENT
  Age: 71 Year
  Sex: Female
  Weight: 90.7 kg

DRUGS (4)
  1. SYMBICORT [Suspect]
     Indication: PLEURAL EFFUSION
     Dosage: 160/4.5 2 PUFFS
     Route: 055
     Dates: start: 20100101
  2. SYMBICORT [Suspect]
     Dosage: 160/4.5 1 PUFF
     Route: 055
  3. SYNTHROID [Concomitant]
     Indication: THYROID DISORDER
  4. MORPHINE [Concomitant]
     Indication: BACK DISORDER

REACTIONS (2)
  - DRUG DOSE OMISSION [None]
  - INTRAOCULAR PRESSURE INCREASED [None]
